FAERS Safety Report 8111001-4 (Version None)
Quarter: 2012Q1

REPORT INFORMATION
  Report Type: 
  Country: None (occurrence: None)
  Receive Date: 20120203
  Receipt Date: 20110207
  Transmission Date: 20120608
  Serious: No
  Sender: FDA-Public Use
  Company Number: US-GLAXOSMITHKLINE-A0912281A

PATIENT
  Age: 63 Year
  Sex: Female

DRUGS (3)
  1. WELLBUTRIN XL [Concomitant]
  2. OPANA [Concomitant]
  3. LAMOTRIGINE [Suspect]
     Indication: DEPRESSION
     Dosage: 75MG PER DAY
     Route: 048
     Dates: start: 20110101, end: 20110206

REACTIONS (2)
  - NONSPECIFIC REACTION [None]
  - RASH [None]
